FAERS Safety Report 13739576 (Version 3)
Quarter: 2017Q3

REPORT INFORMATION
  Report Type: Spontaneous
  Country: US (occurrence: US)
  Receive Date: 20170711
  Receipt Date: 20170727
  Transmission Date: 20171127
  Serious: Yes (Other)
  Sender: FDA-Public Use
  Company Number: US-BAYER-2017-131535

PATIENT
  Age: 50 Year
  Sex: Female

DRUGS (5)
  1. PREDNISONE. [Concomitant]
     Active Substance: PREDNISONE
     Indication: ANTIPHOSPHOLIPID SYNDROME
     Dosage: UNK
  2. ACETYLSALICYLIC ACID({=100 MG) [Suspect]
     Active Substance: ASPIRIN
     Indication: ANTIPHOSPHOLIPID SYNDROME
     Dosage: UNK
  3. APIXABAN [Concomitant]
     Active Substance: APIXABAN
     Indication: ANTIPHOSPHOLIPID SYNDROME
     Dosage: 5 MG, BID
  4. RIVAROXABAN [Suspect]
     Active Substance: RIVAROXABAN
     Indication: ANTIPHOSPHOLIPID SYNDROME
     Dosage: 20 MG, QD
  5. CYCLOSPORINE. [Concomitant]
     Active Substance: CYCLOSPORINE
     Indication: ANTIPHOSPHOLIPID SYNDROME
     Dosage: UNK

REACTIONS (5)
  - Headache [Recovering/Resolving]
  - Drug ineffective [Unknown]
  - Skin ulcer [Recovering/Resolving]
  - Off label use [Unknown]
  - Product use in unapproved indication [Unknown]
